FAERS Safety Report 9853094 (Version 1)
Quarter: 2014Q1

REPORT INFORMATION
  Report Type: Spontaneous
  Country: CH (occurrence: None)
  Receive Date: 20140127
  Receipt Date: 20140127
  Transmission Date: 20141002
  Serious: Yes (Other)
  Sender: FDA-Public Use
  Company Number: 2014CH002974

PATIENT
  Sex: Male

DRUGS (1)
  1. ICLUSIG (PONATINIB) [Suspect]
     Route: 048

REACTIONS (3)
  - Demyelination [None]
  - Aphasia [None]
  - Visual impairment [None]
